FAERS Safety Report 5612544-5 (Version None)
Quarter: 2008Q1

REPORT INFORMATION
  Report Type: 
  Country: None (occurrence: None)
  Receive Date: 20080204
  Receipt Date: 20080130
  Transmission Date: 20080703
  Serious: Yes (Death)
  Sender: FDA-Public Use
  Company Number: IT-ASTRAZENECA-2008SE00523

PATIENT
  Age: 501 Month
  Sex: Female
  Weight: 110 kg

DRUGS (4)
  1. SEROQUEL [Suspect]
     Indication: SCHIZOPHRENIA
     Route: 048
     Dates: start: 20070308
  2. HALDOL [Suspect]
     Indication: SCHIZOPHRENIA
     Route: 048
     Dates: start: 20061024
  3. LORAZEPAM [Suspect]
     Indication: INSOMNIA
     Route: 048
     Dates: start: 20061113
  4. ANTIHYPERTENSIVE AGENTS [Concomitant]
     Indication: HYPERTENSION

REACTIONS (3)
  - ASTHENIA [None]
  - DEATH [None]
  - DIARRHOEA [None]
